FAERS Safety Report 26037085 (Version 1)
Quarter: 2025Q4

REPORT INFORMATION
  Report Type: Spontaneous
  Country: US (occurrence: US)
  Receive Date: 20251112
  Receipt Date: 20251112
  Transmission Date: 20260118
  Serious: No
  Sender: PARATEK PHARMACEUTICALS
  Company Number: US-PARATEK PHARMACEUTICALS, INC.-2025PTK00345

PATIENT
  Sex: Female

DRUGS (2)
  1. NUZYRA [Suspect]
     Active Substance: OMADACYCLINE
     Indication: Wound infection
     Dosage: SAMPLES
     Route: 048
     Dates: start: 2025, end: 2025
  2. NUZYRA [Suspect]
     Active Substance: OMADACYCLINE
     Dosage: PRESCRIPTION
     Route: 048
     Dates: start: 2025

REACTIONS (2)
  - Drug ineffective [Unknown]
  - Product label issue [Unknown]

NARRATIVE: CASE EVENT DATE: 20250101
